FAERS Safety Report 13491127 (Version 2)
Quarter: 2017Q2

REPORT INFORMATION
  Report Type: Report from Study
  Country: CO (occurrence: CO)
  Receive Date: 20170427
  Receipt Date: 20170516
  Transmission Date: 20170830
  Serious: Yes (Death)
  Sender: FDA-Public Use
  Company Number: CO-ACTELION-A-CH2017-152717

PATIENT
  Age: 58 Year
  Sex: Male

DRUGS (3)
  1. TRACLEER [Suspect]
     Active Substance: BOSENTAN
     Indication: PRODUCT USED FOR UNKNOWN INDICATION
     Dosage: 125 MG, BID
     Route: 048
     Dates: start: 20150728
  2. SILDENAFIL. [Concomitant]
     Active Substance: SILDENAFIL
     Dosage: 50 MG, TID
  3. AZATIOPRINA [Concomitant]
     Active Substance: AZATHIOPRINE
     Dosage: 50 MG, Q12HRS
     Dates: start: 20170217

REACTIONS (1)
  - Cardio-respiratory arrest [Fatal]

NARRATIVE: CASE EVENT DATE: 20170417
